FAERS Safety Report 4363975-5 (Version None)
Quarter: 2004Q2

REPORT INFORMATION
  Report Type: 
  Country: None (occurrence: None)
  Receive Date: 20040525
  Receipt Date: 20040204
  Transmission Date: 20050107
  Serious: No
  Sender: FDA-Public Use
  Company Number: US-BRISTOL-MYERS SQUIBB COMPANY-12495941

PATIENT
  Age: 40 Year
  Sex: Male
  Weight: 118 kg

DRUGS (3)
  1. SUSTIVA [Suspect]
     Indication: HIV INFECTION
     Route: 048
  2. ZERIT [Concomitant]
  3. EPIVIR [Concomitant]

REACTIONS (3)
  - ABNORMAL DREAMS [None]
  - DISTURBANCE IN ATTENTION [None]
  - HEADACHE [None]
